FAERS Safety Report 9861385 (Version 1)
Quarter: 2014Q1

REPORT INFORMATION
  Report Type: Spontaneous
  Country: CA (occurrence: CA)
  Receive Date: 20140203
  Receipt Date: 20140203
  Transmission Date: 20141002
  Serious: Yes (Other)
  Sender: FDA-Public Use
  Company Number: CA-AMGEN-CANSP2014006905

PATIENT
  Age: 48 Year
  Sex: Female

DRUGS (3)
  1. ENBREL [Suspect]
     Indication: PSORIASIS
     Dosage: 50 MG, UNK
     Route: 065
     Dates: start: 20110817, end: 201206
  2. DOVOBET [Concomitant]
     Indication: PSORIASIS
     Dosage: UNK
  3. DOVONEX [Concomitant]
     Indication: PSORIASIS
     Dosage: UNK

REACTIONS (1)
  - Breast cancer [Recovering/Resolving]
